FAERS Safety Report 14554698 (Version 1)
Quarter: 2018Q1

REPORT INFORMATION
  Report Type: Spontaneous
  Country: GB (occurrence: GB)
  Receive Date: 20180220
  Receipt Date: 20180220
  Transmission Date: 20180509
  Serious: Yes (Hospitalization, Other)
  Sender: FDA-Public Use
  Company Number: GB-PFIZER INC-2018064747

PATIENT
  Age: 92 Year
  Sex: Male

DRUGS (10)
  1. OMEPRAZOLE. [Suspect]
     Active Substance: OMEPRAZOLE
     Dosage: 20 MG, 1X/DAY
     Dates: start: 20171222
  2. FOLIC ACID. [Suspect]
     Active Substance: FOLIC ACID
     Dosage: 5 MG, 1X/DAY, IN THE MORNING
  3. CLOPIDOGREL [Suspect]
     Active Substance: CLOPIDOGREL BISULFATE
     Dosage: 75 MG, 1X/DAY, IN THE MORNING
  4. ARANESP [Suspect]
     Active Substance: DARBEPOETIN ALFA
     Dosage: 30 UG, WEEKLY
  5. ASCORBIC ACID. [Suspect]
     Active Substance: ASCORBIC ACID
     Dosage: 500 MG, 1X/DAY
  6. AMLODIPINE BESILATE [Suspect]
     Active Substance: AMLODIPINE BESYLATE
     Dosage: 5 MG, 1X/DAY, IN THE MORNING
  7. FERROUS FUMARATE [Suspect]
     Active Substance: FERROUS FUMARATE
     Dosage: 305 MG, 1X/DAY, IN THE MORNING
  8. SODIUM BICARBONATE. [Suspect]
     Active Substance: SODIUM BICARBONATE
     Dosage: 3 G, 1X/DAY
  9. ASCORBIC ACID. [Suspect]
     Active Substance: ASCORBIC ACID
     Dosage: 200 MG, 1X/DAY
  10. SIMVASTATIN. [Suspect]
     Active Substance: SIMVASTATIN
     Dosage: 40 MG, 1X/DAY, AT NIGHT

REACTIONS (1)
  - Ischaemic stroke [Not Recovered/Not Resolved]

NARRATIVE: CASE EVENT DATE: 20180119
